FAERS Safety Report 5299195-X (Version None)
Quarter: 2007Q2

REPORT INFORMATION
  Report Type: 
  Country: None (occurrence: None)
  Receive Date: 20070417
  Receipt Date: 20070402
  Transmission Date: 20071010
  Serious: Yes (Other)
  Sender: FDA-Public Use
  Company Number: US-AMGEN-US121345

PATIENT
  Sex: Male
  Weight: 80.8 kg

DRUGS (2)
  1. ENBREL [Suspect]
     Indication: PSORIATIC ARTHROPATHY
     Route: 058
     Dates: start: 20000101, end: 20050101
  2. METHOTREXATE [Concomitant]
     Route: 065
     Dates: start: 20000101

REACTIONS (1)
  - NON-HODGKIN'S LYMPHOMA [None]
